FAERS Safety Report 5305178-3 (Version None)
Quarter: 2007Q2

REPORT INFORMATION
  Report Type: 
  Country: None (occurrence: None)
  Receive Date: 20070416
  Receipt Date: 20070329
  Transmission Date: 20071010
  Serious: Yes (Hospitalization, Other)
  Sender: FDA-Public Use
  Company Number: 8017259

PATIENT
  Age: 25 Month
  Sex: Female
  Weight: 12 kg

DRUGS (5)
  1. KEPPRA [Suspect]
     Indication: CONVULSION
     Dosage: 100 MG 2/D PO
     Route: 048
     Dates: start: 20060301, end: 20060309
  2. KEPPRA [Suspect]
     Indication: CONVULSION
     Dosage: 500 MG 2/D PO
     Route: 048
     Dates: start: 20060310, end: 20060516
  3. KEPPRA [Suspect]
     Indication: CONVULSION
     Dosage: 1000 MG 2/D PO
     Route: 048
     Dates: start: 20060517, end: 20060601
  4. PHENOBARBITAL TAB [Concomitant]
  5. TOPAMAX [Concomitant]

REACTIONS (7)
  - CONVULSION [None]
  - DRUG ADMINISTRATION ERROR [None]
  - INCORRECT DOSE ADMINISTERED [None]
  - PLATELET COUNT INCREASED [None]
  - PYREXIA [None]
  - SOMNOLENCE [None]
  - UNEVALUABLE EVENT [None]
